FAERS Safety Report 17632014 (Version 12)
Quarter: 2023Q1

REPORT INFORMATION
  Report Type: Spontaneous
  Country: US (occurrence: US)
  Receive Date: 20200406
  Receipt Date: 20230328
  Transmission Date: 20230417
  Serious: Yes (Hospitalization, Other)
  Sender: FDA-Public Use
  Company Number: US-PFIZER INC-2020137350

PATIENT
  Age: 73 Year
  Sex: Male
  Weight: 107.5 kg

DRUGS (3)
  1. XELJANZ XR [Suspect]
     Active Substance: TOFACITINIB CITRATE
     Indication: Rheumatoid arthritis
     Dosage: 11 MG, 1X/DAY
     Route: 048
  2. XELJANZ XR [Suspect]
     Active Substance: TOFACITINIB CITRATE
     Indication: Spinal osteoarthritis
     Dosage: 11 MG, 1X/DAY
     Route: 048
     Dates: end: 202201
  3. REMICADE [Concomitant]
     Active Substance: INFLIXIMAB
     Indication: Rheumatoid arthritis
     Dosage: MONTHLY (INFUSION ONCE A MONTH IN THE ARM FOR 3.5 HOURS ROUGHLY)

REACTIONS (10)
  - Prostate cancer recurrent [Unknown]
  - Dementia [Unknown]
  - Infection [Not Recovered/Not Resolved]
  - COVID-19 [Recovering/Resolving]
  - Urinary tract infection [Unknown]
  - Decubitus ulcer [Unknown]
  - Blood sodium decreased [Unknown]
  - Gait inability [Not Recovered/Not Resolved]
  - Memory impairment [Unknown]
  - Pain [Unknown]

NARRATIVE: CASE EVENT DATE: 20200101
